FAERS Safety Report 15863177 (Version 3)
Quarter: 2019Q2

REPORT INFORMATION
  Report Type: Spontaneous
  Country: PT (occurrence: PT)
  Receive Date: 20190124
  Receipt Date: 20190403
  Transmission Date: 20190711
  Serious: Yes (Hospitalization, Other)
  Sender: FDA-Public Use
  Company Number: PT-MYLANLABS-2019M1006368

PATIENT
  Age: 27 Year
  Sex: Female

DRUGS (5)
  1. FLUTICASONE W/SALMETEROL [Concomitant]
     Active Substance: FLUTICASONE PROPIONATE\SALMETEROL XINAFOATE
     Indication: INFLUENZA LIKE ILLNESS
     Dosage: 1 DOSAGE FORM= (50 MCG SALMETEROL+250 MCG FLUTICASONE PROPIONATE
     Route: 055
  2. BUDESONIDE. [Concomitant]
     Active Substance: BUDESONIDE
     Indication: COUGH
     Dosage: 1 MILLIGRAM, UNK
     Route: 055
  3. PARACETAMOL [Concomitant]
     Active Substance: ACETAMINOPHEN
     Indication: COUGH
     Dosage: 1 GRAM, UNK
     Route: 042
  4. OLANZAPINE. [Suspect]
     Active Substance: OLANZAPINE
     Dosage: 10 MILLIGRAM, QD
     Route: 065
  5. OLANZAPINE. [Suspect]
     Active Substance: OLANZAPINE
     Indication: DELIRIUM
     Dosage: 10 MILLIGRAM, QD
     Route: 065

REACTIONS (14)
  - Drug use disorder [Recovered/Resolved]
  - Off label use [Recovered/Resolved]
  - Delirium [Recovered/Resolved]
  - Altered state of consciousness [Recovered/Resolved]
  - Hallucinations, mixed [Recovered/Resolved]
  - Weight decreased [Recovered/Resolved]
  - Aggression [Recovered/Resolved]
  - Weight increased [Unknown]
  - Intentional product misuse [Unknown]
  - Behaviour disorder [Unknown]
  - Disturbance in attention [Recovered/Resolved]
  - Somnolence [Unknown]
  - Restlessness [Unknown]
  - Overdose [Unknown]
